FAERS Safety Report 13076886 (Version 1)
Quarter: 2016Q4

REPORT INFORMATION
  Report Type: Spontaneous
  Country: FR (occurrence: FR)
  Receive Date: 20161230
  Receipt Date: 20161230
  Transmission Date: 20170207
  Serious: Yes (Hospitalization)
  Sender: FDA-Public Use
  Company Number: FR-PFIZER INC-2016601231

PATIENT
  Age: 80 Year
  Sex: Female

DRUGS (1)
  1. CORDARONE [Suspect]
     Active Substance: AMIODARONE HYDROCHLORIDE
     Indication: ATRIAL FIBRILLATION
     Dosage: 200 MG, DAILY
     Route: 048
     Dates: start: 20141112, end: 20150319

REACTIONS (7)
  - Malaise [Unknown]
  - Cogwheel rigidity [Unknown]
  - Condition aggravated [Recovered/Resolved]
  - Essential tremor [Recovering/Resolving]
  - Fall [Unknown]
  - Head injury [Unknown]
  - Hypothyroidism [Unknown]

NARRATIVE: CASE EVENT DATE: 20141209
